FAERS Safety Report 5677200-6 (Version None)
Quarter: 2008Q1

REPORT INFORMATION
  Report Type: 
  Country: None (occurrence: None)
  Receive Date: 20080318
  Receipt Date: 20080311
  Transmission Date: 20080703
  Serious: Yes (Life-Threatening, Other)
  Sender: FDA-Public Use
  Company Number: JHP200800070

PATIENT
  Age: 12 Year
  Sex: Female

DRUGS (2)
  1. EPINEPHRINE [Suspect]
     Indication: ANAPHYLACTIC REACTION
     Dosage: 0.3 MG, SINGLE, INTRAMUSCULAR
     Route: 030
  2. ASPRIN (ACETYLSALICYLIC ACID) [Concomitant]

REACTIONS (3)
  - HYPOTENSION [None]
  - LONG QT SYNDROME [None]
  - TACHYCARDIA [None]
